FAERS Safety Report 21450263 (Version 3)
Quarter: 2024Q1

REPORT INFORMATION
  Report Type: Report from Study
  Country: US (occurrence: US)
  Receive Date: 20221013
  Receipt Date: 20240119
  Transmission Date: 20240410
  Serious: Yes (Other)
  Sender: FDA-Public Use
  Company Number: US-ABBVIE-22K-163-4474100-00

PATIENT
  Sex: Male

DRUGS (7)
  1. HUMIRA [Suspect]
     Active Substance: ADALIMUMAB
     Indication: Psoriatic arthropathy
     Dosage: CITRATE FREE, FORM STRENGTH 40 MILLIGRAM
     Route: 058
  2. HUMIRA [Suspect]
     Active Substance: ADALIMUMAB
     Indication: Psoriasis
     Dosage: CITRATE FREE, FORM STRENGTH 40 MILLIGRAM
     Route: 058
  3. HUMIRA [Suspect]
     Active Substance: ADALIMUMAB
     Dosage: FORM STRENGTH 40 MILLIGRAM
     Route: 058
     Dates: start: 20220421, end: 202210
  4. MODERNA COVID-19 VACCINE [Concomitant]
     Active Substance: ELASOMERAN
     Indication: COVID-19 immunisation
     Dosage: ONE IN ONCE
     Route: 030
  5. PFIZER-BIONTECH COVID-19 VACCINE [Concomitant]
     Active Substance: TOZINAMERAN
     Indication: COVID-19 immunisation
     Dosage: THIRD DOSE?ONE IN ONCE
     Route: 030
     Dates: start: 20211120, end: 20211120
  6. PFIZER-BIONTECH COVID-19 VACCINE [Concomitant]
     Active Substance: TOZINAMERAN
     Indication: COVID-19 immunisation
     Dosage: SECOND DOSE?ONE IN ONCE
     Route: 030
     Dates: start: 20210421, end: 20210421
  7. PFIZER-BIONTECH COVID-19 VACCINE [Concomitant]
     Active Substance: TOZINAMERAN
     Indication: COVID-19 immunisation
     Dosage: FIRST DOSE?ONCE IN ONCE
     Route: 030
     Dates: start: 20210310, end: 20210310

REACTIONS (13)
  - Nasal septum deviation [Unknown]
  - Contusion [Recovering/Resolving]
  - Asthenia [Unknown]
  - Somnolence [Unknown]
  - Injection site pain [Not Recovered/Not Resolved]
  - Sinusitis [Unknown]
  - Urinary tract infection [Unknown]
  - Narcolepsy [Unknown]
  - Migraine [Unknown]
  - Psoriasis [Unknown]
  - Adverse drug reaction [Unknown]
  - COVID-19 [Unknown]
  - Rash [Unknown]

NARRATIVE: CASE EVENT DATE: 20220101
